FAERS Safety Report 25127593 (Version 1)
Quarter: 2025Q1

REPORT INFORMATION
  Report Type: Spontaneous
  Country: SG (occurrence: SG)
  Receive Date: 20250327
  Receipt Date: 20250327
  Transmission Date: 20250409
  Serious: No
  Sender: ALKEM
  Company Number: None

PATIENT
  Age: 36 Year
  Sex: Female

DRUGS (6)
  1. QUETIAPINE FUMARATE [Suspect]
     Active Substance: QUETIAPINE FUMARATE
     Indication: Product used for unknown indication
     Route: 065
  2. PRAZOSIN [Suspect]
     Active Substance: PRAZOSIN
     Indication: Nightmare
     Route: 065
  3. PRAZOSIN [Suspect]
     Active Substance: PRAZOSIN
     Route: 065
  4. PRAZOSIN [Suspect]
     Active Substance: PRAZOSIN
     Route: 065
  5. PRAZOSIN [Suspect]
     Active Substance: PRAZOSIN
     Route: 065
  6. PRAZOSIN [Suspect]
     Active Substance: PRAZOSIN
     Route: 065

REACTIONS (6)
  - Crying [Unknown]
  - Vomiting [Unknown]
  - Somnolence [Recovered/Resolved]
  - Hypotension [Recovered/Resolved]
  - Overdose [Unknown]
  - Dizziness [Unknown]
